FAERS Safety Report 6113743-9 (Version None)
Quarter: 2009Q1

REPORT INFORMATION
  Report Type: 
  Country: None (occurrence: None)
  Receive Date: 20090312
  Receipt Date: 20090227
  Transmission Date: 20090719
  Serious: Yes (Other)
  Sender: FDA-Public Use
  Company Number: US-TYCO HEALTHCARE/MALLINCKRODT-T200900587

PATIENT
  Sex: Male

DRUGS (3)
  1. OXYCODONE HCL [Suspect]
     Indication: PAIN
     Dosage: 30 MG, QID
     Dates: start: 20080101
  2. SOMA [Concomitant]
     Dosage: UNK
     Dates: start: 20081001, end: 20090201
  3. XANAX [Concomitant]
     Dosage: 1 MG, BID
     Dates: start: 20081001, end: 20090201

REACTIONS (1)
  - PHARYNGEAL OEDEMA [None]
